FAERS Safety Report 10080453 (Version 1)
Quarter: 2014Q2

REPORT INFORMATION
  Report Type: Spontaneous
  Country: US (occurrence: US)
  Receive Date: 20140416
  Receipt Date: 20140416
  Transmission Date: 20141212
  Serious: Yes (Hospitalization)
  Sender: FDA-Public Use
  Company Number: 2014SP000104

PATIENT
  Age: 20 Year
  Sex: Male

DRUGS (37)
  1. CYTARABINE [Suspect]
     Indication: ACUTE LYMPHOCYTIC LEUKAEMIA
     Route: 042
     Dates: start: 20130630, end: 20130705
  2. CYTARABINE [Suspect]
     Route: 042
     Dates: start: 20130630, end: 20130705
  3. FLUDARABINE [Suspect]
     Indication: ACUTE LYMPHOCYTIC LEUKAEMIA
     Route: 042
     Dates: start: 20130701, end: 20130705
  4. FILGRASTIM [Suspect]
     Indication: ACUTE LYMPHOCYTIC LEUKAEMIA
     Route: 042
     Dates: start: 20130630
  5. FILGRASTIM [Suspect]
     Indication: ACUTE LYMPHOCYTIC LEUKAEMIA
     Route: 058
  6. SALBUTAMOL [Concomitant]
     Indication: DYSPNOEA
     Route: 065
     Dates: start: 20130705, end: 20130705
  7. ALLOPURINOL [Concomitant]
     Indication: PROPHYLAXIS
     Dates: start: 20130624, end: 20130706
  8. ATENOLOL [Concomitant]
     Indication: HYPERTENSION
     Dates: start: 20130701
  9. CALCIUM CARBONATE [Concomitant]
     Indication: HYPOCALCAEMIA
     Dates: start: 20130630, end: 20130706
  10. ACETAMINOPHEN [Concomitant]
     Indication: PLATELET COUNT DECREASED
     Dates: start: 20130703, end: 20130709
  11. ACETAMINOPHEN [Concomitant]
     Indication: PYREXIA
     Dates: start: 20130703, end: 20130709
  12. CEFEPIME [Concomitant]
     Indication: SEPSIS
     Dates: start: 20130703
  13. DEXAMETHASONE [Concomitant]
     Indication: PROPHYLAXIS
     Dates: start: 20130630, end: 20130707
  14. DIPHENHYDRAMINE HCL + IBUPROFEN [Concomitant]
     Indication: NAUSEA
     Dates: start: 20130703, end: 20130709
  15. DIPHENHYDRAMINE HCL + IBUPROFEN [Concomitant]
     Indication: PREMEDICATION
     Dates: start: 20130703, end: 20130709
  16. GRANULOCYTE COLONY-STIMULATING FACTOR NOS [Concomitant]
     Indication: NEUTROPHIL COUNT DECREASED
     Dates: start: 20130630
  17. FLUCONAZOLE [Concomitant]
     Indication: INFECTION PROPHYLAXIS
     Dates: start: 20130703, end: 20130706
  18. GABAPENTIN [Concomitant]
     Indication: NEURALGIA
     Dates: start: 20130628
  19. GRANISETRON HYDROCHLORIDE [Concomitant]
     Indication: NAUSEA
     Dates: start: 20130630, end: 20130709
  20. HEPARIN FLUSH [Concomitant]
     Dates: start: 20130706
  21. HYDRALAZINE [Concomitant]
     Indication: HYPERTENSION
     Dates: start: 20130629, end: 20130630
  22. HYDROCORTISONE [Concomitant]
     Indication: PREMEDICATION
     Dates: start: 20130704, end: 20130709
  23. INSULIN ASPART [Concomitant]
     Indication: HYPERGLYCAEMIA
     Dates: start: 20130630, end: 20130701
  24. IOHEXOL [Concomitant]
     Indication: PREMEDICATION
     Dates: start: 20130706, end: 20130706
  25. LEVOFLOXACIN [Concomitant]
     Indication: ANTIBIOTIC PROPHYLAXIS
     Dates: start: 20130628, end: 20130703
  26. LIDOCAINE/PRILOCAINE [Concomitant]
     Indication: ANAESTHESIA
     Route: 061
     Dates: start: 20130709, end: 20130709
  27. LORAZEPAM [Concomitant]
     Indication: NAUSEA
     Dates: start: 20130630, end: 20130706
  28. MAGNESIUM OXIDE [Concomitant]
     Indication: HYPOMAGNESAEMIA
     Dates: start: 20130630
  29. MAGNESIUM SULFATE [Concomitant]
     Indication: HYPOMAGNESAEMIA
     Dates: start: 20130630, end: 20130703
  30. NYSTATIN [Concomitant]
     Indication: MUCOSAL INFECTION
     Dates: start: 20130627
  31. ONDANSETRON [Concomitant]
     Indication: NAUSEA
     Dates: start: 20130630, end: 20130630
  32. RANITIDINE [Concomitant]
     Indication: PREMEDICATION
     Dates: start: 20130704, end: 20130709
  33. BACTRIM [Concomitant]
     Indication: ANTIBIOTIC PROPHYLAXIS
     Dates: start: 20130628
  34. VANCOMYCIN [Concomitant]
     Indication: SEPSIS
     Dates: start: 20130704
  35. VORICONAZOLE [Concomitant]
     Indication: LUNG INFECTION
     Dates: start: 20130627
  36. SEVELAMER CARBONATE [Concomitant]
     Indication: TUMOUR LYSIS SYNDROME
     Dates: start: 20130627, end: 20130706
  37. AMPHOTERICIN B [Concomitant]

REACTIONS (2)
  - Neutropenia [Recovered/Resolved]
  - Diarrhoea [Recovered/Resolved]
